FAERS Safety Report 10812127 (Version 1)
Quarter: 2015Q1

REPORT INFORMATION
  Report Type: Spontaneous
  Country: FR (occurrence: None)
  Receive Date: 20150212
  Receipt Date: 20150212
  Transmission Date: 20150721
  Serious: Yes (Hospitalization)
  Sender: FDA-Public Use
  Company Number: 8009890

PATIENT
  Age: 65 Year
  Sex: Female

DRUGS (5)
  1. AVLOCARDYL /00030001/ (PROPRANOLOL) [Concomitant]
  2. LEVOTHYROX (LEVOTHYROXINE SODIUM) (50 MICROGRAM) (LEVOTHYROXINE SODIUM) [Suspect]
     Active Substance: LEVOTHYROXINE SODIUM
     Indication: PRODUCT USED FOR UNKNOWN INDICATION
     Dosage: SCORED, DISCONTINUED FOR 10 DAYS, ORAL
     Route: 048
     Dates: end: 20140825
  3. ALDACTONE /00006201/ (SPIRONOLACTONE) [Concomitant]
  4. LYRICA [Concomitant]
     Active Substance: PREGABALIN
  5. GLUCOPHAGE [Concomitant]
     Active Substance: METFORMIN HYDROCHLORIDE

REACTIONS (3)
  - Atrial fibrillation [None]
  - Hyperthyroidism [None]
  - Accidental overdose [None]

NARRATIVE: CASE EVENT DATE: 201408
